FAERS Safety Report 24744828 (Version 1)
Quarter: 2024Q4

REPORT INFORMATION
  Report Type: Spontaneous
  Country: US (occurrence: None)
  Receive Date: 20241217
  Receipt Date: 20241217
  Transmission Date: 20250114
  Serious: Yes (Disabling)
  Sender: Public
  Company Number: None

PATIENT
  Age: 12 Year
  Sex: Male
  Weight: 112.5 kg

DRUGS (3)
  1. FLUOXETINE [Suspect]
     Active Substance: FLUOXETINE HYDROCHLORIDE
     Indication: Suicidal ideation
     Dosage: FREQUENCY : DAILY;?
     Route: 048
  2. CELEXA [Suspect]
     Active Substance: CITALOPRAM HYDROBROMIDE
     Indication: Anxiety
     Dosage: FREQUENCY : DAILY;?
     Route: 048
     Dates: end: 20221122
  3. VYVANSE [Suspect]
     Active Substance: LISDEXAMFETAMINE DIMESYLATE

REACTIONS (30)
  - Suicidal ideation [None]
  - Withdrawal syndrome [None]
  - Palpitations [None]
  - Sexual dysfunction [None]
  - Orthostatic hypotension [None]
  - Skin burning sensation [None]
  - Hypoaesthesia [None]
  - Paraesthesia [None]
  - Swelling face [None]
  - Weight increased [None]
  - Anhedonia [None]
  - Brain fog [None]
  - Depersonalisation/derealisation disorder [None]
  - Therapy cessation [None]
  - Libido decreased [None]
  - Sexual dysfunction [None]
  - Libido decreased [None]
  - Genital hypoaesthesia [None]
  - Erectile dysfunction [None]
  - Cognitive disorder [None]
  - Derealisation [None]
  - Aphantasia [None]
  - Amnesia [None]
  - Confusional state [None]
  - Hot flush [None]
  - Hypoaesthesia [None]
  - Hypoaesthesia [None]
  - Dizziness [None]
  - Chest pain [None]
  - Pain in extremity [None]

NARRATIVE: CASE EVENT DATE: 20161230
